FAERS Safety Report 23602065 (Version 3)
Quarter: 2024Q3

REPORT INFORMATION
  Report Type: Spontaneous
  Country: US (occurrence: US)
  Receive Date: 20240306
  Receipt Date: 20240827
  Transmission Date: 20241016
  Serious: No
  Sender: SANOFI AVENTIS
  Company Number: US-SA-SAC20240229001107

PATIENT
  Age: 39 Year
  Sex: Male
  Weight: 65.77 kg

DRUGS (2)
  1. ELOCTATE [Suspect]
     Active Substance: EFMOROCTOCOG ALFA
     Indication: Factor VIII deficiency
     Dosage: INFUSE 2500 UNITS (2250-2750) SLOW IV PUSH EVERY TUESDAY AND FRIDAY AS PROPHYLAXIS
     Route: 042
     Dates: start: 202304
  2. ELOCTATE [Suspect]
     Active Substance: EFMOROCTOCOG ALFA
     Indication: Factor VIII deficiency
     Dosage: INFUSE 2500 UNITS (2250-2750) SLOW IV PUSH EVERY TUESDAY AND FRIDAY AS PROPHYLAXIS
     Route: 042
     Dates: start: 202304

REACTIONS (4)
  - Haemorrhage [Recovered/Resolved]
  - Weight decreased [Unknown]
  - Joint injury [Unknown]
  - Haemorrhage [Recovered/Resolved]

NARRATIVE: CASE EVENT DATE: 20240224
